FAERS Safety Report 20849687 (Version 2)
Quarter: 2022Q2

REPORT INFORMATION
  Report Type: Spontaneous
  Country: US (occurrence: US)
  Receive Date: 20220519
  Receipt Date: 20220601
  Transmission Date: 20220721
  Serious: Yes (Other)
  Sender: FDA-Public Use
  Company Number: US-TEVA-2022-US-2037129

PATIENT
  Age: 57 Year
  Sex: Male

DRUGS (10)
  1. CAPECITABINE [Suspect]
     Active Substance: CAPECITABINE
     Indication: Rectal cancer stage III
     Dosage: 1650 MG/M2 DAILY;
     Route: 065
  2. FLUOROURACIL [Suspect]
     Active Substance: FLUOROURACIL
     Indication: Rectal cancer stage III
     Dosage: ADJUVANT FOLFOX, PLANNED FOR 8 CYCLES
     Route: 065
  3. LEUCOVORIN [Suspect]
     Active Substance: LEUCOVORIN
     Indication: Rectal cancer stage III
     Dosage: ADJUVANT FOLFOX, PLANNED FOR 8 CYCLES
     Route: 065
  4. OXALIPLATIN [Suspect]
     Active Substance: OXALIPLATIN
     Indication: Rectal cancer stage III
     Dosage: ADJUVANT FOLFOX, PLANNED FOR 8 CYCLES, 85 MG/M2
     Route: 065
  5. METHYLPREDNISOLONE [Suspect]
     Active Substance: METHYLPREDNISOLONE
     Indication: Recall phenomenon
     Dosage: 40 MILLIGRAM DAILY;
     Route: 065
  6. METHYLPREDNISOLONE [Suspect]
     Active Substance: METHYLPREDNISOLONE
     Indication: Myositis
     Dosage: 5 MILLIGRAM DAILY; STEROIDS WERE TAPERED FOR 4 MONTHS
     Route: 065
  7. METHYLPREDNISOLONE [Suspect]
     Active Substance: METHYLPREDNISOLONE
     Indication: Peripheral sensorimotor neuropathy
  8. GABAPENTIN [Concomitant]
     Active Substance: GABAPENTIN
     Indication: Peripheral sensorimotor neuropathy
     Dosage: 300 MILLIGRAM DAILY; STARTING DOSES OF 300 MG NIGHTLY
     Route: 065
  9. OXYCODONE [Concomitant]
     Active Substance: OXYCODONE
     Indication: Peripheral sensorimotor neuropathy
     Dosage: 30 MILLIGRAM DAILY; 5 MG EVERY 4 HOURS AS NEEDED
     Route: 065
  10. DULOXETINE [Concomitant]
     Active Substance: DULOXETINE
     Indication: Peripheral sensorimotor neuropathy
     Dosage: 60 MILLIGRAM DAILY; DULOXETINE WAS TRIED FOR 1 MONTH
     Route: 065

REACTIONS (14)
  - Recall phenomenon [Recovering/Resolving]
  - Myositis [Recovering/Resolving]
  - Peripheral sensorimotor neuropathy [Recovering/Resolving]
  - Pain in extremity [Recovering/Resolving]
  - Rebound effect [Recovering/Resolving]
  - Mobility decreased [Recovering/Resolving]
  - Deep vein thrombosis [Recovering/Resolving]
  - Oedema peripheral [Recovering/Resolving]
  - Hypoaesthesia [Recovering/Resolving]
  - Gait disturbance [Recovering/Resolving]
  - Fall [Recovered/Resolved]
  - Muscular weakness [Recovering/Resolving]
  - Balance disorder [Recovering/Resolving]
  - Lumbar radiculopathy [Recovering/Resolving]
